FAERS Safety Report 5089534-7 (Version None)
Quarter: 2006Q3

REPORT INFORMATION
  Report Type: 
  Country: None (occurrence: None)
  Receive Date: 20060727
  Receipt Date: 20060607
  Transmission Date: 20061208
  Serious: Yes (Other)
  Sender: FDA-Public Use
  Company Number: 2006074458

PATIENT
  Sex: 0

DRUGS (2)
  1. LYRICA [Suspect]
     Indication: ANALGESIC EFFECT
     Dosage: 150 MG (50 MG, 3 IN 1 D)
  2. NEURONTIN [Concomitant]

REACTIONS (1)
  - UNEVALUABLE EVENT [None]
